FAERS Safety Report 10463257 (Version 1)
Quarter: 2014Q3

REPORT INFORMATION
  Report Type: Report from Study
  Country: DE (occurrence: DE)
  Receive Date: 20140919
  Receipt Date: 20140919
  Transmission Date: 20150326
  Serious: Yes (Hospitalization)
  Sender: FDA-Public Use
  Company Number: DE-BIOGENIDEC-2014BI095831

PATIENT
  Age: 40 Year
  Sex: Female

DRUGS (1)
  1. AVONEX [Suspect]
     Active Substance: INTERFERON BETA-1A
     Indication: MULTIPLE SCLEROSIS
     Route: 030
     Dates: start: 20140721

REACTIONS (6)
  - Gait disturbance [Recovered/Resolved with Sequelae]
  - Speech disorder [Not Recovered/Not Resolved]
  - Multiple sclerosis [Not Recovered/Not Resolved]
  - Musculoskeletal stiffness [Not Recovered/Not Resolved]
  - Hypoaesthesia [Recovered/Resolved with Sequelae]
  - Hypoaesthesia oral [Not Recovered/Not Resolved]

NARRATIVE: CASE EVENT DATE: 201408
